FAERS Safety Report 7627126-3 (Version None)
Quarter: 2011Q3

REPORT INFORMATION
  Report Type: 
  Country: None (occurrence: None)
  Receive Date: 20110714
  Receipt Date: 20110701
  Transmission Date: 20111222
  Serious: Yes (Other)
  Sender: FDA-Public Use
  Company Number: GER/GER/11/0018909

PATIENT
  Sex: Female
  Weight: 2.955 kg

DRUGS (4)
  1. ALPRAZOLAM [Concomitant]
  2. CITALOPRAM HYDROBROMIDE [Suspect]
     Indication: PRODUCT USED FOR UNKNOWN INDICATION
     Dosage: 15 MG, 1 IN 1 D, TRANSPLANCETAL
     Route: 064
  3. PAROXETINE HCL [Suspect]
     Indication: PRODUCT USED FOR UNKNOWN INDICATION
     Dosage: 10 MG, 1 IN 1 D, TRANSPLACENTAL
     Route: 064
     Dates: start: 20090527
  4. FOLIO FORTE (FOLIC ACID) [Concomitant]

REACTIONS (2)
  - SMALL FOR DATES BABY [None]
  - MATERNAL EXPOSURE DURING PREGNANCY [None]
